FAERS Safety Report 4972674-8 (Version None)
Quarter: 2006Q1

REPORT INFORMATION
  Report Type: 
  Country: None (occurrence: None)
  Receive Date: 20060216
  Receipt Date: 20030421
  Transmission Date: 20060701
  Serious: Yes (Other)
  Sender: FDA-Public Use
  Company Number: 2003IM000419

PATIENT
  Age: 66 Year
  Sex: Female
  Weight: 65.7716 kg

DRUGS (9)
  1. INTERFERON GAMMA-1B [Suspect]
     Indication: OVARIAN CANCER
     Dosage: 100 UG, TIW, SUBCUTANEOUS
     Route: 058
     Dates: start: 20030210
  2. CARBOPLATIN [Suspect]
     Indication: OVARIAN CANCER
     Dosage: 674 MG, Q3W, INTRAVENOUS
     Route: 042
     Dates: start: 20030210, end: 20030324
  3. PACLITAXEL [Suspect]
     Indication: OVARIAN CANCER
     Dosage: 296 MG, Q3W, INTRAVENOUS
     Route: 042
     Dates: start: 20030210, end: 20030324
  4. LOTENSIN [Concomitant]
  5. CENTRUM [Concomitant]
  6. DARVOCET-N 100 [Concomitant]
  7. MOTRIN [Concomitant]
  8. ACYCLOVIR [Concomitant]
  9. AMBIEN [Concomitant]

REACTIONS (1)
  - NEUTROPENIA [None]
